FAERS Safety Report 9378956 (Version 1)
Quarter: 2013Q3

REPORT INFORMATION
  Report Type: Spontaneous
  Country: US (occurrence: US)
  Receive Date: 20130702
  Receipt Date: 20130702
  Transmission Date: 20140515
  Serious: Yes (Other)
  Sender: FDA-Public Use
  Company Number: US-PFIZER INC-2013191044

PATIENT
  Age: 62 Year
  Sex: Female
  Weight: 87.3 kg

DRUGS (7)
  1. MORPHINE SULFATE [Suspect]
     Dosage: UNK
  2. IBUPROFEN [Suspect]
     Dosage: UNK
  3. GABAPENTIN [Suspect]
     Dosage: UNK
  4. CODEINE [Suspect]
     Dosage: UNK
  5. PHENTERMINE HYDROCHLORIDE [Suspect]
     Dosage: UNK
  6. TOPAMAX [Suspect]
     Dosage: UNK
  7. ACETAMINOPHEN W/CODEINE [Suspect]
     Dosage: UNK

REACTIONS (1)
  - Drug hypersensitivity [Unknown]
